FAERS Safety Report 4467985-9 (Version None)
Quarter: 2004Q4

REPORT INFORMATION
  Report Type: 
  Country: None (occurrence: None)
  Receive Date: 20041004
  Receipt Date: 20040922
  Transmission Date: 20050328
  Serious: Yes (Other)
  Sender: FDA-Public Use
  Company Number: CA-2004-032411

PATIENT

DRUGS (1)
  1. FLUDARA [Suspect]
     Dosage: ORAL
     Route: 048

REACTIONS (2)
  - CARDIAC DISORDER [None]
  - MYOSITIS [None]
